FAERS Safety Report 8286960-X (Version None)
Quarter: 2012Q2

REPORT INFORMATION
  Report Type: 
  Country: None (occurrence: None)
  Receive Date: 20120416
  Receipt Date: 20120411
  Transmission Date: 20120825
  Serious: No
  Sender: FDA-Public Use
  Company Number: US-PFIZER INC-2012090787

PATIENT
  Sex: Female
  Weight: 72 kg

DRUGS (4)
  1. LOMOTIL [Suspect]
     Indication: DIARRHOEA
     Dosage: UNK
     Dates: start: 19730101
  2. DIPHENOXYLATE HCL AND ATROPINE SULFATE [Suspect]
     Indication: DIARRHOEA
     Dosage: UNK
  3. DIPHENOXYLATE HCL AND ATROPINE SULFATE [Suspect]
     Dosage: UNK
  4. DIPHENOXYLATE HCL AND ATROPINE SULFATE [Suspect]
     Indication: DIARRHOEA
     Dosage: UNK

REACTIONS (6)
  - GASTROOESOPHAGEAL REFLUX DISEASE [None]
  - CARDIAC DISORDER [None]
  - HYPERTENSION [None]
  - DIARRHOEA [None]
  - FALL [None]
  - DRUG INEFFECTIVE [None]
